FAERS Safety Report 4292789-X (Version None)
Quarter: 2004Q1

REPORT INFORMATION
  Report Type: 
  Country: None (occurrence: None)
  Receive Date: 20040210
  Receipt Date: 20040128
  Transmission Date: 20041129
  Serious: Yes (Life-Threatening, Hospitalization)
  Sender: FDA-Public Use
  Company Number: 02050524 HQ2293813MAY2002

PATIENT
  Age: 17 Year
  Sex: Female

DRUGS (5)
  1. ENBREL [Suspect]
     Indication: PSORIATIC ARTHROPATHY
     Dosage: 25 MG, BIW, SC
     Route: 058
     Dates: start: 20010901, end: 20020205
  2. LEVONORGESTREL/ETHINYLOESTRADIOL [Suspect]
     Dosage: 30 MCG
     Dates: start: 20020201
  3. METHOTREXATE [Suspect]
     Dates: start: 20000301, end: 20020205
  4. PREDNISOLONE [Concomitant]
  5. LEUCOVORIN CALCIUM [Concomitant]

REACTIONS (3)
  - C-REACTIVE PROTEIN INCREASED [None]
  - STEVENS-JOHNSON SYNDROME [None]
  - TOXIC EPIDERMAL NECROLYSIS [None]
